FAERS Safety Report 12846997 (Version 1)
Quarter: 2016Q4

REPORT INFORMATION
  Report Type: Spontaneous
  Country: US (occurrence: US)
  Receive Date: 20161014
  Receipt Date: 20161014
  Transmission Date: 20170207
  Serious: Yes (Hospitalization)
  Sender: FDA-Public Use
  Company Number: US-UNITED THERAPEUTICS-UNT-2016-015544

PATIENT
  Age: 59 Year
  Sex: Male
  Weight: 91.16 kg

DRUGS (1)
  1. REMODULIN [Suspect]
     Active Substance: TREPROSTINIL
     Indication: PULMONARY HYPERTENSION
     Dosage: 0.036 ?G/KG, CONTINUING
     Route: 041
     Dates: start: 20160215

REACTIONS (3)
  - Renal disorder [Unknown]
  - Hepatic failure [Unknown]
  - Hypotension [Unknown]

NARRATIVE: CASE EVENT DATE: 20160921
